FAERS Safety Report 20125035 (Version 2)
Quarter: 2021Q4

REPORT INFORMATION
  Report Type: Spontaneous
  Country: US (occurrence: US)
  Receive Date: 20211129
  Receipt Date: 20211201
  Transmission Date: 20220303
  Serious: Yes (Other)
  Sender: FDA-Public Use
  Company Number: US-PFIZER INC-202101620114

PATIENT

DRUGS (2)
  1. XANAX [Suspect]
     Active Substance: ALPRAZOLAM
     Indication: Anxiety
     Dosage: 6 MG
  2. XANAX [Suspect]
     Active Substance: ALPRAZOLAM
     Dosage: 10 MG

REACTIONS (11)
  - Injury [Unknown]
  - Road traffic accident [Unknown]
  - Fall [Unknown]
  - Mobility decreased [Unknown]
  - Panic attack [Unknown]
  - Nausea [Unknown]
  - Illness [Unknown]
  - Gastrointestinal disorder [Unknown]
  - Irritable bowel syndrome [Unknown]
  - Fibromyalgia [Unknown]
  - Pain [Unknown]
